FAERS Safety Report 10782947 (Version 1)
Quarter: 2015Q1

REPORT INFORMATION
  Report Type: Spontaneous
  Country: US (occurrence: US)
  Receive Date: 20150210
  Receipt Date: 20150210
  Transmission Date: 20150721
  Serious: No
  Sender: FDA-Public Use
  Company Number: US-GLAXOSMITHKLINE-A1079953A

PATIENT

DRUGS (18)
  1. VALIUM [Concomitant]
     Active Substance: DIAZEPAM
  2. BIOTIN [Concomitant]
     Active Substance: BIOTIN
  3. VITAMIN B12 [Concomitant]
     Active Substance: CYANOCOBALAMIN
  4. PRILOSEC [Concomitant]
     Active Substance: OMEPRAZOLE MAGNESIUM
  5. CYMBALTA [Concomitant]
     Active Substance: DULOXETINE HYDROCHLORIDE
  6. VITAMIN E [Concomitant]
     Active Substance: .ALPHA.-TOCOPHEROL
  7. FENTANYL TRANSDERMAL SYSTEM [Suspect]
     Active Substance: FENTANYL
     Indication: PAIN
     Dosage: 150UG/HR, 1 IN 72 HOUR
     Route: 062
  8. BETAMETHASONE [Concomitant]
     Active Substance: BETAMETHASONE
  9. AMBIEN [Concomitant]
     Active Substance: ZOLPIDEM TARTRATE
  10. IMITREX [Suspect]
     Active Substance: SUMATRIPTAN\SUMATRIPTAN SUCCINATE
     Indication: HEADACHE
     Dosage: 100MG TABLET AS NEEDED
     Route: 048
     Dates: start: 2011
  11. BACLOFEN. [Concomitant]
     Active Substance: BACLOFEN
  12. RITALIN [Concomitant]
     Active Substance: METHYLPHENIDATE HYDROCHLORIDE
  13. TRICOR [Concomitant]
     Active Substance: FENOFIBRATE
  14. CALCIPOTRIENE. [Concomitant]
     Active Substance: CALCIPOTRIENE
  15. PHENAZOPYRIDINE. [Concomitant]
     Active Substance: PHENAZOPYRIDINE
  16. FISH OIL [Concomitant]
     Active Substance: FISH OIL
  17. VITAMIN C [Concomitant]
     Active Substance: ASCORBIC ACID
  18. TRAZODONE [Suspect]
     Active Substance: TRAZODONE HYDROCHLORIDE
     Indication: HEADACHE
     Route: 048
     Dates: start: 2011

REACTIONS (3)
  - Hormone level abnormal [Unknown]
  - Body height decreased [Unknown]
  - Wrong technique in drug usage process [Recovered/Resolved]

NARRATIVE: CASE EVENT DATE: 2011
